FAERS Safety Report 6874353-9 (Version None)
Quarter: 2010Q3

REPORT INFORMATION
  Report Type: 
  Country: None (occurrence: None)
  Receive Date: 20100723
  Receipt Date: 20090613
  Transmission Date: 20110219
  Serious: No
  Sender: FDA-Public Use
  Company Number: US-PFIZER INC-2009202003

PATIENT
  Sex: Female
  Weight: 102.96 kg

DRUGS (13)
  1. CHANTIX [Interacting]
     Indication: SMOKING CESSATION THERAPY
     Dosage: UNK
  2. SEROQUEL [Interacting]
  3. LORATADINE [Suspect]
     Indication: SINUS DISORDER
     Dosage: 10 MG, 1X/DAY
  4. PHENYLEPHRINE HCL [Suspect]
     Indication: SINUS DISORDER
     Dosage: 10 MG, UNK
  5. NEXIUM [Concomitant]
     Dosage: UNK
  6. LIPITOR [Concomitant]
     Dosage: UNK
  7. CELEBREX [Concomitant]
     Dosage: UNK
  8. TRICOR [Concomitant]
     Dosage: UNK
  9. CYMBALTA [Concomitant]
     Dosage: UNK
  10. LISINOPRIL [Concomitant]
     Dosage: UNK
  11. CLONAZEPAM [Concomitant]
     Dosage: UNK
  12. TRAMADOL [Concomitant]
     Dosage: UNK
  13. BACLOFEN [Concomitant]
     Dosage: UNK

REACTIONS (3)
  - DRUG INTERACTION [None]
  - DYSPNOEA [None]
  - INSOMNIA [None]
